FAERS Safety Report 5146699-6 (Version None)
Quarter: 2006Q4

REPORT INFORMATION
  Report Type: 
  Country: None (occurrence: None)
  Receive Date: 20061109
  Receipt Date: 20050104
  Transmission Date: 20070319
  Serious: Yes (Death, Other)
  Sender: FDA-Public Use
  Company Number: 2005AC00016

PATIENT
  Age: 58 Year
  Sex: Female

DRUGS (5)
  1. QUETIAPINE FUMARATE [Suspect]
     Route: 048
  2. METFORMIN HCL [Concomitant]
  3. RAMIPRIL [Concomitant]
  4. THYROID REPLACEMENT THERAPY [Concomitant]
  5. LITHIUM CARBONATE [Concomitant]

REACTIONS (16)
  - ARTERIOSCLEROSIS [None]
  - ASTERIXIS [None]
  - BRONCHOPNEUMONIA [None]
  - CYSTITIS [None]
  - ENCEPHALOPATHY [None]
  - FUNGUS URINE TEST POSITIVE [None]
  - HEPATIC ENZYME INCREASED [None]
  - HEPATIC FAILURE [None]
  - HEPATIC NECROSIS [None]
  - HEPATOMEGALY [None]
  - MENTAL DISORDER [None]
  - PITTING OEDEMA [None]
  - PYELONEPHRITIS ACUTE [None]
  - RENAL IMPAIRMENT [None]
  - SPLENOMEGALY [None]
  - STAPHYLOCOCCAL SEPSIS [None]
